FAERS Safety Report 11959239 (Version 1)
Quarter: 2016Q1

REPORT INFORMATION
  Report Type: Report from Study
  Country: DE (occurrence: DE)
  Receive Date: 20160126
  Receipt Date: 20160126
  Transmission Date: 20160526
  Serious: Yes (Hospitalization)
  Sender: FDA-Public Use
  Company Number: DE-ROCHE-1699796

PATIENT
  Age: 53 Year
  Sex: Female
  Weight: 56 kg

DRUGS (1)
  1. BEVACIZUMAB [Suspect]
     Active Substance: BEVACIZUMAB
     Indication: OVARIAN CANCER RECURRENT
     Dosage: DATE OF LAST DOSE PRIOR TO SAE: 30/DEC/2015
     Route: 042
     Dates: start: 20150219, end: 20160115

REACTIONS (1)
  - Hepatobiliary disease [Unknown]

NARRATIVE: CASE EVENT DATE: 20160114
